FAERS Safety Report 10180967 (Version 1)
Quarter: 2014Q2

REPORT INFORMATION
  Report Type: Spontaneous
  Country: US (occurrence: US)
  Receive Date: 20140519
  Receipt Date: 20140519
  Transmission Date: 20141212
  Serious: No
  Sender: FDA-Public Use
  Company Number: US-AMGEN INC.-USASP2014005670

PATIENT
  Age: 72 Year
  Sex: Female

DRUGS (10)
  1. PROLIA [Suspect]
     Indication: OSTEOPOROSIS POSTMENOPAUSAL
     Dosage: UNK
     Route: 065
     Dates: start: 201111
  2. HYDROCHLOROTHIAZIDE [Concomitant]
     Dosage: 12.5 MG, QD
  3. AMLODIPINE                         /00972402/ [Concomitant]
     Dosage: 5 MG, UNK
  4. OMEPRAZOLE [Concomitant]
     Dosage: 20 MG, QD
  5. MIRAPEX [Concomitant]
     Dosage: 0.5 MG, QHS
  6. CRESTOR [Concomitant]
     Dosage: 10 MG, QHS
  7. SINGULAIR [Concomitant]
     Dosage: 10 MG, QHS
  8. TRAZODONE [Concomitant]
     Dosage: 50 MG, AS NECESSARY
  9. QVAR [Concomitant]
     Dosage: 80 MUG, BID
  10. ASPIRIN [Concomitant]
     Dosage: 81 MG, UNK

REACTIONS (5)
  - Nervous system disorder [Unknown]
  - Skin disorder [Unknown]
  - Scab [Unknown]
  - Rash erythematous [Unknown]
  - Pruritus [Unknown]
